FAERS Safety Report 6291462-6 (Version None)
Quarter: 2009Q3

REPORT INFORMATION
  Report Type: 
  Country: None (occurrence: None)
  Receive Date: 20090730
  Receipt Date: 20090721
  Transmission Date: 20100115
  Serious: Yes (Other)
  Sender: FDA-Public Use
  Company Number: AU-ASTRAZENECA-2009SE05207

PATIENT
  Sex: Female

DRUGS (3)
  1. OMEPRAZOLE [Suspect]
  2. PLAVIX [Interacting]
  3. MOBIC [Concomitant]

REACTIONS (2)
  - DRUG INTERACTION [None]
  - TRANSIENT ISCHAEMIC ATTACK [None]
